FAERS Safety Report 8614106 (Version 3)
Quarter: 2012Q4

REPORT INFORMATION
  Report Type: Report from Study
  Country: CA (occurrence: CA)
  Receive Date: 20120614
  Receipt Date: 20121217
  Transmission Date: 20130627
  Serious: Yes (Other)
  Sender: FDA-Public Use
  Company Number: CA-JNJFOC-20111204516

PATIENT
  Age: 52 None
  Sex: Female
  Weight: 83.01 kg

DRUGS (4)
  1. STELARA [Suspect]
     Indication: PSORIASIS
     Route: 058
     Dates: start: 200907, end: 20111015
  2. LYRICA [Concomitant]
  3. CORTICOSTEROID [Concomitant]
     Indication: PSORIASIS
  4. TEGRETOL [Concomitant]

REACTIONS (4)
  - Psoriatic arthropathy [Unknown]
  - Posterior reversible encephalopathy syndrome [Unknown]
  - Drug ineffective [Unknown]
  - Psoriasis [Unknown]
